FAERS Safety Report 21477467 (Version 1)
Quarter: 2022Q4

REPORT INFORMATION
  Report Type: Report from Study
  Country: US (occurrence: US)
  Receive Date: 20221019
  Receipt Date: 20221019
  Transmission Date: 20230113
  Serious: No
  Sender: FDA-Public Use
  Company Number: US-ABBVIE-4159939

PATIENT
  Sex: Female

DRUGS (3)
  1. SKYRIZI [Suspect]
     Active Substance: RISANKIZUMAB-RZAA
     Indication: Psoriatic arthropathy
     Dosage: WEEK 0 FORM STRENGTH: 150 MILLIGRAM
     Route: 058
     Dates: start: 20220430, end: 20220430
  2. SKYRIZI [Suspect]
     Active Substance: RISANKIZUMAB-RZAA
     Indication: Psoriatic arthropathy
     Dosage: THEN EVERY 12 WEEKS THEREAFTER. FORM STRENGTH: 150 MILLIGRAM
     Route: 058
     Dates: start: 202208
  3. SKYRIZI [Suspect]
     Active Substance: RISANKIZUMAB-RZAA
     Dosage: WEEK 4 FORM STRENGTH: 150 MILLIGRAM
     Route: 058
     Dates: start: 20220528, end: 20220528

REACTIONS (6)
  - COVID-19 [Unknown]
  - Pain of skin [Unknown]
  - Skin burning sensation [Unknown]
  - Erythema [Unknown]
  - Peripheral swelling [Unknown]
  - Pain [Unknown]

NARRATIVE: CASE EVENT DATE: 20220101
